FAERS Safety Report 7898681-3 (Version None)
Quarter: 2011Q4

REPORT INFORMATION
  Report Type: 
  Country: None (occurrence: None)
  Receive Date: 20111107
  Receipt Date: 20111102
  Transmission Date: 20120403
  Serious: Yes (Life-Threatening)
  Sender: FDA-Public Use
  Company Number: US-PFIZER INC-2011261440

PATIENT
  Age: 75 Year
  Sex: Male

DRUGS (1)
  1. DISOPYRAMIDE PHOSPHATE [Suspect]
     Indication: VENTRICULAR EXTRASYSTOLES
     Dosage: 150 MG, 4X/DAY
     Route: 048
     Dates: start: 19820101

REACTIONS (2)
  - HYPOGLYCAEMIA [None]
  - COMA [None]
